FAERS Safety Report 13959673 (Version 1)
Quarter: 2017Q3

REPORT INFORMATION
  Report Type: Spontaneous
  Country: US (occurrence: US)
  Receive Date: 20170911
  Receipt Date: 20170911
  Transmission Date: 20171128
  Serious: Yes (Hospitalization)
  Sender: FDA-Public Use
  Company Number: US-FRESENIUS KABI-FK201707460

PATIENT
  Age: 81 Year
  Sex: Female

DRUGS (1)
  1. HYDRALAZINE [Suspect]
     Active Substance: HYDRALAZINE HYDROCHLORIDE
     Indication: HYPERTENSION
     Route: 065

REACTIONS (2)
  - Pulmonary alveolar haemorrhage [Recovered/Resolved]
  - Anti-neutrophil cytoplasmic antibody positive vasculitis [Recovered/Resolved]
